FAERS Safety Report 8964015 (Version 1)
Quarter: 2012Q4

REPORT INFORMATION
  Report Type: Report from Study
  Country: IT (occurrence: IT)
  Receive Date: 20121213
  Receipt Date: 20121213
  Transmission Date: 20130627
  Serious: Yes (Hospitalization, Disabling, Other)
  Sender: FDA-Public Use
  Company Number: IT-BAXTER-2012BAX026385

PATIENT
  Age: 69 Year
  Sex: Male
  Weight: 62 kg

DRUGS (10)
  1. ENDOXAN BAXTER [Suspect]
     Indication: DIFFUSE LARGE B-CELL LYMPHOMA
     Route: 065
     Dates: start: 20081029
  2. ENDOXAN BAXTER [Suspect]
     Route: 065
     Dates: start: 20081119, end: 20090123
  3. RITUXIMAB [Suspect]
     Indication: DIFFUSE LARGE B-CELL LYMPHOMA
     Route: 048
     Dates: start: 20081029
  4. RITUXIMAB [Suspect]
     Route: 048
     Dates: start: 20081119, end: 20090123
  5. LENALIDOMIDE [Suspect]
     Indication: DIFFUSE LARGE B-CELL LYMPHOMA
     Route: 048
     Dates: start: 20081029
  6. LENALIDOMIDE [Suspect]
     Route: 048
     Dates: start: 20081119, end: 20081121
  7. LENALIDOMIDE [Suspect]
     Route: 048
     Dates: start: 20081122, end: 20081127
  8. LENALIDOMIDE [Suspect]
     Route: 048
     Dates: end: 20090123
  9. DOXORUBICIN HYDROCHLORIDE [Suspect]
     Indication: DIFFUSE LARGE B-CELL LYMPHOMA
     Route: 065
     Dates: start: 20081029, end: 20090123
  10. PREDNISONE [Suspect]
     Indication: DIFFUSE LARGE B-CELL LYMPHOMA
     Route: 065
     Dates: start: 20081029, end: 20090123

REACTIONS (3)
  - Neuropathy peripheral [Recovered/Resolved]
  - Phlebitis [Recovered/Resolved with Sequelae]
  - Extravasation [Unknown]
